FAERS Safety Report 7013129-9 (Version None)
Quarter: 2010Q3

REPORT INFORMATION
  Report Type: 
  Country: None (occurrence: None)
  Receive Date: 20100909
  Receipt Date: 20100520
  Transmission Date: 20110219
  Serious: Yes (Other)
  Sender: FDA-Public Use
  Company Number: 2010SP028294

PATIENT
  Age: 21 Year
  Sex: Female

DRUGS (5)
  1. SAPHRIS [Suspect]
     Indication: BIPOLAR DISORDER
     Dosage: 10 MG;BID;PO
     Dates: start: 20100501, end: 20100501
  2. BUPROPION (CON.) [Concomitant]
  3. PROZAC (CON.) [Concomitant]
  4. ATIVAN (CON.) [Concomitant]
  5. LAMICTAL (CON.) [Concomitant]

REACTIONS (6)
  - ANXIETY [None]
  - CHEST DISCOMFORT [None]
  - DIZZINESS [None]
  - INCORRECT ROUTE OF DRUG ADMINISTRATION [None]
  - LOSS OF CONSCIOUSNESS [None]
  - NAUSEA [None]
